FAERS Safety Report 18826884 (Version 1)
Quarter: 2021Q1

REPORT INFORMATION
  Report Type: Spontaneous
  Country: US (occurrence: US)
  Receive Date: 20210202
  Receipt Date: 20210202
  Transmission Date: 20210419
  Serious: No
  Sender: FDA-Public Use
  Company Number: US-PERRIGO-20US018421

PATIENT
  Age: 70 Year
  Sex: Female
  Weight: 63.49 kg

DRUGS (3)
  1. ESTRADIOL. [Suspect]
     Active Substance: ESTRADIOL
     Indication: PRODUCT USED FOR UNKNOWN INDICATION
     Dosage: 1 G, 2 TIMES WEEKLY
     Route: 067
     Dates: start: 20201107, end: 202011
  2. LEVOTHYROXINE. [Concomitant]
     Active Substance: LEVOTHYROXINE
     Indication: THYROID DISORDER
     Dosage: 5 MCG, QD
     Route: 065
  3. ATENOLOL. [Concomitant]
     Active Substance: ATENOLOL
     Indication: HYPERTENSION
     Dosage: 50 MG, QD
     Route: 065

REACTIONS (3)
  - Vulvovaginal swelling [Recovered/Resolved]
  - Vulvovaginal erythema [Recovered/Resolved]
  - Vulvovaginal pruritus [Recovered/Resolved]

NARRATIVE: CASE EVENT DATE: 202011
